FAERS Safety Report 8140465-5 (Version None)
Quarter: 2012Q1

REPORT INFORMATION
  Report Type: 
  Country: None (occurrence: None)
  Receive Date: 20120216
  Receipt Date: 20120210
  Transmission Date: 20120608
  Serious: Yes (Hospitalization, Other)
  Sender: FDA-Public Use
  Company Number: US-PFIZER INC-2012038082

PATIENT
  Sex: Male

DRUGS (1)
  1. SUTENT [Suspect]
     Indication: RENAL CANCER
     Dosage: 50 MG, 1X/DAY
     Dates: start: 20120126

REACTIONS (6)
  - DEHYDRATION [None]
  - ASTHENIA [None]
  - FATIGUE [None]
  - URINARY TRACT INFECTION [None]
  - DECREASED APPETITE [None]
  - MALAISE [None]
